FAERS Safety Report 6512044-4 (Version None)
Quarter: 2009Q4

REPORT INFORMATION
  Report Type: 
  Country: None (occurrence: None)
  Receive Date: 20091222
  Receipt Date: 20090520
  Transmission Date: 20100525
  Serious: No
  Sender: FDA-Public Use
  Company Number: US-ASTRAZENECA-2009UW13059

PATIENT
  Sex: Male
  Weight: 86.2 kg

DRUGS (5)
  1. CRESTOR [Suspect]
     Route: 048
  2. AZALEX [Concomitant]
  3. TRICOR [Concomitant]
  4. FERAQUIP XL [Concomitant]
  5. COLACE [Concomitant]

REACTIONS (1)
  - ELECTRIC SHOCK [None]
